FAERS Safety Report 6873460-4 (Version None)
Quarter: 2010Q3

REPORT INFORMATION
  Report Type: 
  Country: None (occurrence: None)
  Receive Date: 20100723
  Receipt Date: 20090114
  Transmission Date: 20110219
  Serious: No
  Sender: FDA-Public Use
  Company Number: US-PFIZER INC-2009157990

PATIENT
  Sex: Female
  Weight: 81.633 kg

DRUGS (14)
  1. CHANTIX [Suspect]
     Indication: SMOKING CESSATION THERAPY
     Dosage: 0.5 MG, 1X/DAY
     Dates: start: 20090111
  2. ACIPHEX [Concomitant]
     Dosage: UNK
  3. CITALOPRAM [Concomitant]
     Dosage: UNK
  4. VICODIN [Concomitant]
     Dosage: UNK
  5. TRICOR [Concomitant]
     Dosage: UNK
  6. SIMVASTATIN [Concomitant]
     Dosage: UNK
  7. SPIRIVA [Concomitant]
     Dosage: UNK
  8. PROMETHAZINE HYDROCHLORIDE [Concomitant]
     Dosage: UNK
  9. REGLAN [Concomitant]
     Dosage: UNK
  10. CYCLOBENZAPRINE [Concomitant]
     Dosage: UNK
  11. CALCIUM [Concomitant]
     Dosage: UNK
  12. FIBRE, DIETARY [Concomitant]
     Dosage: UNK
  13. VITAMIN E [Concomitant]
     Dosage: UNK
  14. FISH OIL [Concomitant]
     Dosage: UNK

REACTIONS (1)
  - NAUSEA [None]
